FAERS Safety Report 25019962 (Version 1)
Quarter: 2025Q1

REPORT INFORMATION
  Report Type: Other
  Country: FR (occurrence: FR)
  Receive Date: 20250227
  Receipt Date: 20250227
  Transmission Date: 20250408
  Serious: Yes (Hospitalization)
  Sender: ZHEJIANG YONGTAI
  Company Number: FR-Zhejiang Yongtai pharmaceuticals Co..,Ltd.-2171892

PATIENT
  Age: 68 Year
  Sex: Male

DRUGS (5)
  1. ESOMEPRAZOLE MAGNESIUM [Suspect]
     Active Substance: ESOMEPRAZOLE MAGNESIUM
     Indication: Product used for unknown indication
  2. TACROLIMUS [Interacting]
     Active Substance: TACROLIMUS
  3. VORICONAZOLE [Concomitant]
     Active Substance: VORICONAZOLE
  4. POSACONAZOLE [Interacting]
     Active Substance: POSACONAZOLE
  5. ISAVUCONAZOLE [Interacting]
     Active Substance: ISAVUCONAZOLE

REACTIONS (7)
  - Toxicity to various agents [Unknown]
  - Drug interaction [Unknown]
  - Asthenia [Unknown]
  - Taste disorder [Unknown]
  - Dyspnoea [Unknown]
  - Fatigue [Unknown]
  - Decreased appetite [Unknown]
